FAERS Safety Report 8213293-X (Version None)
Quarter: 2012Q1

REPORT INFORMATION
  Report Type: 
  Country: None (occurrence: None)
  Receive Date: 20120315
  Receipt Date: 20120310
  Transmission Date: 20120608
  Serious: Yes (Other)
  Sender: FDA-Public Use
  Company Number: PHHY2012MX022491

PATIENT
  Sex: Female

DRUGS (2)
  1. GLIMETAL [Concomitant]
     Indication: DIABETES MELLITUS
     Dosage: 1 DF, DAILY
     Dates: start: 20100101
  2. EXFORGE [Suspect]
     Indication: HYPERTENSION
     Dosage: 1 DF (160/5 MG), DAILY
     Dates: start: 20111204

REACTIONS (5)
  - FEELING DRUNK [None]
  - BLOOD GLUCOSE DECREASED [None]
  - FEELING COLD [None]
  - COLD SWEAT [None]
  - PAIN IN EXTREMITY [None]
